FAERS Safety Report 9308436 (Version 1)
Quarter: 2013Q2

REPORT INFORMATION
  Report Type: Spontaneous
  Country: US (occurrence: US)
  Receive Date: 20130524
  Receipt Date: 20130524
  Transmission Date: 20140414
  Serious: Yes (Other)
  Sender: FDA-Public Use
  Company Number: US-BRISTOL-MYERS SQUIBB COMPANY-17483652

PATIENT
  Age: 66 Year
  Sex: Male

DRUGS (16)
  1. PRAVACHOL [Suspect]
  2. LIVALO [Suspect]
     Dosage: TAB
     Route: 048
  3. ASA [Concomitant]
     Dosage: EVERY MRNG
     Route: 048
  4. B12 [Concomitant]
     Dosage: 1DF=1000MCG/ML
     Route: 030
  5. PLAVIX [Concomitant]
     Route: 048
  6. CYANOCOBALAMINE [Concomitant]
     Dosage: 1DF=1000MCG/ML
     Route: 030
  7. TEMOVATE [Concomitant]
     Indication: RASH
     Route: 061
  8. FLOMAX [Concomitant]
     Dosage: CAPS
     Route: 048
  9. LISINOPRIL [Concomitant]
     Dosage: 1DF=10MG TAB
     Route: 048
  10. FISH OIL [Concomitant]
     Dosage: TAB
  11. VIAGRA [Concomitant]
     Dosage: HALF TAB
     Route: 048
  12. ZETIA [Concomitant]
     Dosage: TAB
     Route: 048
  13. TESTOSTERONE CIPIONATE [Concomitant]
     Route: 030
  14. LOVAZA [Concomitant]
     Dosage: CAPS
     Route: 048
  15. TRILIPIX [Concomitant]
     Dosage: 1TAB
     Route: 048
  16. ALBUTEROL INHALER [Concomitant]
     Dosage: 2 PUFFS
     Route: 055

REACTIONS (1)
  - Hepatitis [Unknown]
